FAERS Safety Report 9559859 (Version 1)
Quarter: 2013Q3

REPORT INFORMATION
  Report Type: Spontaneous
  Country: CO (occurrence: None)
  Receive Date: 20130925
  Receipt Date: 20130925
  Transmission Date: 20140515
  Serious: Yes (Death, Hospitalization)
  Sender: FDA-Public Use
  Company Number: CO-LHC-2013044

PATIENT
  Sex: Female

DRUGS (1)
  1. OXYGEN (OXYGEN) (GAS FOR INHALATION) [Suspect]
     Indication: PRODUCT USED FOR UNKNOWN INDICATION
     Route: 055

REACTIONS (3)
  - Accident [None]
  - Burns second degree [None]
  - Thermal burn [None]
